FAERS Safety Report 5706132-X (Version None)
Quarter: 2008Q2

REPORT INFORMATION
  Report Type: 
  Country: None (occurrence: None)
  Receive Date: 20080415
  Receipt Date: 20080410
  Transmission Date: 20081010
  Serious: Yes (Hospitalization)
  Sender: FDA-Public Use
  Company Number: US-GENENTECH-259109

PATIENT
  Sex: Male
  Weight: 20.9 kg

DRUGS (4)
  1. SOMATROPIN [Suspect]
     Indication: GROWTH HORMONE DEFICIENCY
     Dosage: 0.8 MG, 7/WEEK
     Dates: start: 20050321
  2. CORTEF [Concomitant]
     Indication: DRUG USE FOR UNKNOWN INDICATION
     Dosage: 5 MG, QOD
     Route: 048
  3. CORTEF [Concomitant]
     Dosage: 7.5 MG, QOD
     Route: 048
  4. SYNTHROID [Concomitant]
     Indication: DRUG USE FOR UNKNOWN INDICATION
     Dosage: 50 A?G, QD
     Route: 042

REACTIONS (1)
  - HYPOGLYCAEMIA [None]
